FAERS Safety Report 10009675 (Version 2)
Quarter: 2014Q1

REPORT INFORMATION
  Report Type: Spontaneous
  Country: US (occurrence: US)
  Receive Date: 20140312
  Receipt Date: 20140312
  Transmission Date: 20141002
  Serious: Yes (Other)
  Sender: FDA-Public Use
  Company Number: US-INCYTE CORPORATION-2012IN001517

PATIENT
  Age: 73 Year
  Sex: Female
  Weight: 76.19 kg

DRUGS (4)
  1. JAKAFI [Suspect]
     Indication: MYELOFIBROSIS
     Dosage: 15 MG, BID
     Route: 048
     Dates: start: 20120730, end: 20120815
  2. JAKAFI [Suspect]
     Dosage: 5 MG, BID
     Route: 048
     Dates: start: 20120906, end: 2012
  3. JAKAFI [Suspect]
     Dosage: 7.5 MG, BID
     Route: 048
     Dates: start: 2012
  4. PROCRIT [Concomitant]

REACTIONS (3)
  - Thrombocytopenia [Recovered/Resolved]
  - Anaemia [Unknown]
  - Medication error [Unknown]
